FAERS Safety Report 13787394 (Version 1)
Quarter: 2017Q3

REPORT INFORMATION
  Report Type: Report from Study
  Country: None (occurrence: US)
  Receive Date: 20170725
  Receipt Date: 20170725
  Transmission Date: 20171127
  Serious: Yes (Other)
  Sender: FDA-Public Use
  Company Number: US-ABBVIE-17K-163-2046952-00

PATIENT
  Age: 14 Year
  Sex: Female

DRUGS (1)
  1. HUMIRA [Suspect]
     Active Substance: ADALIMUMAB
     Indication: CROHN^S DISEASE
     Route: 058
     Dates: start: 20170714, end: 20170714

REACTIONS (13)
  - Hypersomnia [Unknown]
  - Intestinal stenosis [Unknown]
  - Decreased appetite [Unknown]
  - Pyrexia [Unknown]
  - Gastrointestinal hypomotility [Unknown]
  - Ocular hyperaemia [Recovered/Resolved]
  - Anaemia [Unknown]
  - Vitamin D deficiency [Unknown]
  - Abdominal pain upper [Unknown]
  - Nausea [Unknown]
  - Peripheral swelling [Unknown]
  - Fatigue [Unknown]
  - Loss of personal independence in daily activities [Unknown]

NARRATIVE: CASE EVENT DATE: 201707
